FAERS Safety Report 4636803-8 (Version None)
Quarter: 2005Q2

REPORT INFORMATION
  Report Type: 
  Country: None (occurrence: None)
  Receive Date: 20050414
  Receipt Date: 20050406
  Transmission Date: 20051028
  Serious: Yes (Death, Other)
  Sender: FDA-Public Use
  Company Number: 163-20785-04120529

PATIENT
  Age: 72 Year
  Sex: Male

DRUGS (1)
  1. THALOMID [Suspect]
     Indication: MULTIPLE MYELOMA
     Dosage: 400 MG, QD; ORAL
     Route: 048

REACTIONS (5)
  - CELLULITIS [None]
  - DISEASE PROGRESSION [None]
  - LEG AMPUTATION [None]
  - RASH [None]
  - SEPSIS [None]
